FAERS Safety Report 6359686-7 (Version None)
Quarter: 2009Q3

REPORT INFORMATION
  Report Type: 
  Country: None (occurrence: None)
  Receive Date: 20090917
  Receipt Date: 20090908
  Transmission Date: 20100115
  Serious: Yes (Death, Hospitalization)
  Sender: FDA-Public Use
  Company Number: US-PFIZER INC-2005146242

PATIENT
  Sex: Male
  Weight: 129.25 kg

DRUGS (25)
  1. SUNITINIB MALATE [Suspect]
     Indication: RENAL CELL CARCINOMA
     Dosage: 50 MG, 1X/DAY
     Route: 048
     Dates: start: 20051011, end: 20051023
  2. ACTOS [Concomitant]
     Dosage: UNK
     Route: 048
     Dates: start: 20050501
  3. NOVOLOG [Concomitant]
     Route: 058
  4. NORVASC [Concomitant]
     Route: 048
  5. LASIX [Concomitant]
     Dosage: UNK
     Route: 048
     Dates: start: 20031001
  6. PROTONIX [Concomitant]
     Dosage: UNK
     Route: 048
     Dates: start: 20050401
  7. LISINOPRIL [Concomitant]
     Route: 048
  8. VYTORIN [Concomitant]
     Route: 048
  9. LANTUS [Concomitant]
     Route: 058
  10. INDOCIN [Concomitant]
     Route: 048
  11. PERCOCET [Concomitant]
     Route: 048
  12. FLEXERIL [Concomitant]
     Dosage: UNK
     Route: 048
     Dates: start: 20050101
  13. GLIPIZIDE [Concomitant]
     Dosage: UNK
     Route: 048
     Dates: start: 20050501
  14. ZOLOFT [Concomitant]
     Dosage: UNK
     Route: 048
     Dates: start: 20050909
  15. TRICOR [Concomitant]
     Dosage: UNK
     Route: 048
     Dates: start: 20000101
  16. SPIRONOLACTONE [Concomitant]
     Dosage: UNK
     Route: 048
     Dates: start: 20050801
  17. NAPROXEN [Concomitant]
     Dosage: UNK
     Route: 048
     Dates: start: 20050901
  18. FLUCONAZOLE [Concomitant]
     Dosage: UNK
     Route: 048
     Dates: start: 20050801
  19. DUONEB [Concomitant]
     Dosage: UNK
     Route: 055
     Dates: start: 20050701
  20. MARINOL [Concomitant]
     Dosage: UNK
     Route: 048
     Dates: start: 20050301
  21. SILVADENE [Concomitant]
     Dosage: UNK
     Route: 061
     Dates: start: 20050801
  22. TRIAMCINOLONE [Concomitant]
     Dosage: UNK
     Route: 061
     Dates: start: 20050801
  23. OXYCODONE HCL AND ACETAMINOPHEN [Concomitant]
     Dosage: UNK
     Route: 048
     Dates: start: 20050901
  24. OXYGEN [Concomitant]
     Dosage: UNK
     Route: 055
     Dates: start: 20050901
  25. INSULIN [Concomitant]
     Dosage: UNK
     Route: 058
     Dates: start: 20000101

REACTIONS (5)
  - ASTHENIA [None]
  - CONFUSIONAL STATE [None]
  - DISEASE PROGRESSION [None]
  - DYSPNOEA [None]
  - RENAL CELL CARCINOMA [None]
